FAERS Safety Report 7523609-5 (Version None)
Quarter: 2011Q2

REPORT INFORMATION
  Report Type: 
  Country: None (occurrence: None)
  Receive Date: 20110601
  Receipt Date: 20110601
  Transmission Date: 20111010
  Serious: No
  Sender: FDA-Public Use
  Company Number: None

PATIENT
  Sex: Female

DRUGS (1)
  1. CORTEF [Suspect]
     Dosage: ONE TABLET FOUR TIMES A DAY BY MOUTH
     Route: 048
     Dates: start: 20110404

REACTIONS (7)
  - PRODUCT TASTE ABNORMAL [None]
  - PRODUCT SIZE ISSUE [None]
  - DRUG INEFFECTIVE [None]
  - PRODUCT ODOUR ABNORMAL [None]
  - MYALGIA [None]
  - FATIGUE [None]
  - TABLET PHYSICAL ISSUE [None]
